FAERS Safety Report 19362117 (Version 1)
Quarter: 2021Q2

REPORT INFORMATION
  Report Type: Spontaneous
  Country: US (occurrence: US)
  Receive Date: 20210603
  Receipt Date: 20210603
  Transmission Date: 20210717
  Serious: Yes (Hospitalization, Other)
  Sender: FDA-Public Use
  Company Number: US-AMGEN-USASP2021081191

PATIENT
  Age: 15 Year
  Sex: Male

DRUGS (6)
  1. CALCIUM [Concomitant]
     Active Substance: CALCIUM
     Dosage: 1250 MILLIGRAM, QD
  2. XGEVA [Suspect]
     Active Substance: DENOSUMAB
     Indication: CHONDROBLASTOMA
     Dosage: 120 MILLIGRAM, Q4WK FOR 3 TREATMENTS
     Route: 058
  3. CALCIUM [Concomitant]
     Active Substance: CALCIUM
     Dosage: 500 MILLIGRAM, QD
  4. VITAMIN D3 [Concomitant]
     Active Substance: CHOLECALCIFEROL
     Dosage: 4,000 IU, QD
  5. XGEVA [Suspect]
     Active Substance: DENOSUMAB
     Indication: OFF LABEL USE
  6. POTASSIUM PHOSPHATES [Concomitant]
     Active Substance: POTASSIUM PHOSPHATE, DIBASIC\POTASSIUM PHOSPHATE, MONOBASIC
     Dosage: 250 MILLIGRAM, BID

REACTIONS (4)
  - Paraesthesia [Recovered/Resolved]
  - Chondroblastoma [Recovered/Resolved]
  - Drug effective for unapproved indication [Unknown]
  - Off label use [Unknown]
